FAERS Safety Report 18916189 (Version 1)
Quarter: 2021Q1

REPORT INFORMATION
  Report Type: Spontaneous
  Country: IT (occurrence: IT)
  Receive Date: 20210218
  Receipt Date: 20210218
  Transmission Date: 20210420
  Serious: Yes (Hospitalization)
  Sender: FDA-Public Use
  Company Number: IT-SUN PHARMACEUTICAL INDUSTRIES LTD-2021RR-281624

PATIENT
  Age: 66 Year
  Sex: Male

DRUGS (9)
  1. ETOPOSIDE. [Suspect]
     Active Substance: ETOPOSIDE
     Indication: NEUROENDOCRINE CARCINOMA
     Dosage: 3 CYCLES
     Route: 065
  2. OXALIPLATIN. [Suspect]
     Active Substance: OXALIPLATIN
     Indication: MIXED ADENONEUROENDOCRINE CARCINOMA
     Dosage: 6 CYCLES OF MFOLFOX6
     Route: 065
  3. IRINOTECAN [Suspect]
     Active Substance: IRINOTECAN
     Indication: MIXED ADENONEUROENDOCRINE CARCINOMA
     Dosage: MFOLFIRI
     Route: 065
  4. CALCIUM FOLINAT [Suspect]
     Active Substance: LEUCOVORIN CALCIUM
     Dosage: FOLFIRI REGIMEN
     Route: 065
  5. 5?FLUOROURACIL [Suspect]
     Active Substance: FLUOROURACIL
     Indication: MIXED ADENONEUROENDOCRINE CARCINOMA
     Dosage: 6 CYCLES OF MFOLFOX6
     Route: 065
  6. CALCIUM FOLINAT [Suspect]
     Active Substance: LEUCOVORIN CALCIUM
     Indication: MIXED ADENONEUROENDOCRINE CARCINOMA
     Dosage: 6 CYCLES OF MFOLFOX6
     Route: 065
  7. CARBOPLATIN. [Suspect]
     Active Substance: CARBOPLATIN
     Indication: NEUROENDOCRINE CARCINOMA
     Dosage: 3 CYCLES
     Route: 065
  8. 5?FLUOROURACIL [Suspect]
     Active Substance: FLUOROURACIL
     Dosage: FOLFRI REGIMEN
     Route: 065
  9. CAPECITABINE. [Suspect]
     Active Substance: CAPECITABINE
     Indication: MIXED ADENONEUROENDOCRINE CARCINOMA
     Dosage: 825 MILLIGRAM/SQ. METER, BID
     Route: 065

REACTIONS (4)
  - Disease progression [Unknown]
  - Therapeutic product effect incomplete [Unknown]
  - Cardiac disorder [Unknown]
  - Dysphagia [Recovering/Resolving]
